FAERS Safety Report 6443284-0 (Version None)
Quarter: 2009Q4

REPORT INFORMATION
  Report Type: 
  Country: None (occurrence: None)
  Receive Date: 20091112
  Receipt Date: 20091029
  Transmission Date: 20100525
  Serious: Yes (Hospitalization)
  Sender: FDA-Public Use
  Company Number: 1000009825

PATIENT
  Age: 52 Year
  Sex: Male

DRUGS (5)
  1. NEBIVOLOL HCL [Suspect]
     Indication: HYPERTENSION
     Dosage: 5 MG (2.5 MG, 2 IN 1 D), ORAL
     Route: 048
     Dates: start: 20080618
  2. RAMIPRIL [Suspect]
     Indication: HYPERTENSION
     Dosage: 2.5 MG (2.5 MG, 1 IN 1 D) ORAL
     Route: 048
     Dates: start: 20080618
  3. ASPIRIN [Concomitant]
  4. NITROGLYCERIN [Concomitant]
  5. TORVAST [Concomitant]

REACTIONS (2)
  - HYPOTENSION [None]
  - PALPITATIONS [None]
